FAERS Safety Report 24108466 (Version 1)
Quarter: 2024Q3

REPORT INFORMATION
  Report Type: Report from Study
  Country: US (occurrence: None)
  Receive Date: 20240718
  Receipt Date: 20240718
  Transmission Date: 20241017
  Serious: Yes (Other)
  Sender: ASTRAZENECA
  Company Number: 2020SF46453

PATIENT
  Sex: Female

DRUGS (1)
  1. TAGRISSO [Suspect]
     Active Substance: OSIMERTINIB
     Indication: Lung carcinoma cell type unspecified stage 0
     Route: 048

REACTIONS (8)
  - Thyroid disorder [Unknown]
  - Metastases to bone [Unknown]
  - Stomatitis [Unknown]
  - Dysphonia [Unknown]
  - Dry skin [Unknown]
  - Constipation [Unknown]
  - Photopsia [Unknown]
  - Oropharyngeal pain [Unknown]
